FAERS Safety Report 14939391 (Version 1)
Quarter: 2018Q2

REPORT INFORMATION
  Report Type: Spontaneous
  Country: US (occurrence: US)
  Receive Date: 20180525
  Receipt Date: 20180525
  Transmission Date: 20180711
  Serious: No
  Sender: FDA-Public Use
  Company Number: US-SA-2018SA138407

PATIENT
  Sex: Female

DRUGS (17)
  1. PROGESTERONE. [Concomitant]
     Active Substance: PROGESTERONE
  2. PROZAC [Concomitant]
     Active Substance: FLUOXETINE HYDROCHLORIDE
  3. CRESTOR [Concomitant]
     Active Substance: ROSUVASTATIN CALCIUM
  4. FLUZONE HIGH DOSE [Concomitant]
  5. TEMAZEPAM. [Concomitant]
     Active Substance: TEMAZEPAM
  6. XANAX [Concomitant]
     Active Substance: ALPRAZOLAM
  7. COMPOUND 347 [Concomitant]
  8. AUBAGIO [Suspect]
     Active Substance: TERIFLUNOMIDE
     Dosage: 1 DF, QD
     Route: 048
  9. MODAFINIL. [Concomitant]
     Active Substance: MODAFINIL
  10. LEVOXYL [Concomitant]
     Active Substance: LEVOTHYROXINE SODIUM
  11. CIPROFLOXACIN HCL [Concomitant]
     Active Substance: CIPROFLOXACIN HYDROCHLORIDE
  12. ALENDRONATE SODIUM. [Concomitant]
     Active Substance: ALENDRONATE SODIUM
  13. VITAMIN D [Concomitant]
     Active Substance: CHOLECALCIFEROL
  14. RANITIDINE HCL [Concomitant]
     Active Substance: RANITIDINE HYDROCHLORIDE
  15. LOMOTIL [LOPERAMIDE HYDROCHLORIDE] [Concomitant]
  16. AMPYRA [Suspect]
     Active Substance: DALFAMPRIDINE
  17. OXYBUTYNIN CHLORIDE. [Concomitant]
     Active Substance: OXYBUTYNIN CHLORIDE

REACTIONS (2)
  - Fall [Recovered/Resolved]
  - Bladder disorder [Not Recovered/Not Resolved]
